FAERS Safety Report 7639116-5 (Version None)
Quarter: 2011Q3

REPORT INFORMATION
  Report Type: 
  Country: None (occurrence: None)
  Receive Date: 20110726
  Receipt Date: 20110726
  Transmission Date: 20111222
  Serious: Yes (Other)
  Sender: FDA-Public Use
  Company Number: None

PATIENT
  Sex: Male
  Weight: 11.33 kg

DRUGS (2)
  1. KEPPRA [Suspect]
     Indication: TUBEROUS SCLEROSIS
     Dosage: 2ML BID PO
     Route: 048
  2. KEPPRA [Suspect]
     Indication: INFANTILE SPASMS
     Dosage: 2ML BID PO
     Route: 048

REACTIONS (4)
  - MOOD ALTERED [None]
  - MOOD SWINGS [None]
  - CONVULSION [None]
  - PRODUCT SUBSTITUTION ISSUE [None]
